FAERS Safety Report 10498521 (Version 3)
Quarter: 2014Q4

REPORT INFORMATION
  Report Type: Spontaneous
  Country: US (occurrence: US)
  Receive Date: 20141006
  Receipt Date: 20141106
  Transmission Date: 20150528
  Serious: Yes (Other)
  Sender: FDA-Public Use
  Company Number: US-009507513-1409USA014308

PATIENT
  Age: 64 Year
  Sex: Male
  Weight: 105.21 kg

DRUGS (5)
  1. NORVASC [Suspect]
     Active Substance: AMLODIPINE BESYLATE
     Dosage: 5 MG, QD
     Route: 048
     Dates: start: 201408
  2. CARDURA XL [Concomitant]
     Active Substance: DOXAZOSIN MESYLATE
     Dosage: 2 MG, UNK
     Dates: start: 2013, end: 2014
  3. HYZAAR [Suspect]
     Active Substance: HYDROCHLOROTHIAZIDE\LOSARTAN POTASSIUM
     Indication: PRODUCT USED FOR UNKNOWN INDICATION
     Dosage: 100/25 MG, QD
     Route: 048
     Dates: start: 1996
  4. CARDURA XL [Concomitant]
     Active Substance: DOXAZOSIN MESYLATE
     Indication: PRODUCT USED FOR UNKNOWN INDICATION
     Dosage: 1 MG, UNK
     Dates: start: 2011, end: 2013
  5. NORVASC [Suspect]
     Active Substance: AMLODIPINE BESYLATE
     Indication: HYPERTENSION
     Dosage: 10 MG, QD
     Route: 048
     Dates: start: 2000, end: 20140814

REACTIONS (25)
  - Overdose [Unknown]
  - Weight decreased [Recovering/Resolving]
  - Chest pain [Unknown]
  - Blood testosterone decreased [Unknown]
  - Asthma [Unknown]
  - Cough [Unknown]
  - Osteoarthritis [Unknown]
  - Rosacea [Unknown]
  - Dizziness [Recovered/Resolved]
  - Malaise [Recovering/Resolving]
  - Nausea [Unknown]
  - Acne [Unknown]
  - Syncope [Recovered/Resolved]
  - Testicular operation [Unknown]
  - Metabolic syndrome [Unknown]
  - Altered state of consciousness [Recovering/Resolving]
  - Drug effect incomplete [Unknown]
  - Coronary artery disease [Unknown]
  - Gastrooesophageal reflux disease [Unknown]
  - Dyspnoea [Unknown]
  - Choking [Unknown]
  - Testicular torsion [Unknown]
  - Blood pressure decreased [Recovering/Resolving]
  - Myocardial ischaemia [Unknown]
  - Prostate cancer [Unknown]

NARRATIVE: CASE EVENT DATE: 2007
